FAERS Safety Report 16248303 (Version 2)
Quarter: 2019Q3

REPORT INFORMATION
  Report Type: Spontaneous
  Country: US (occurrence: US)
  Receive Date: 20190429
  Receipt Date: 20190814
  Transmission Date: 20191004
  Serious: No
  Sender: FDA-Public Use
  Company Number: US-TEVA-2019-US-1039219

PATIENT
  Age: 64 Year
  Sex: Female

DRUGS (1)
  1. CLONAZEPAM ACTAVIS [Suspect]
     Active Substance: CLONAZEPAM
     Indication: SEIZURE
     Route: 065

REACTIONS (11)
  - Insomnia [Unknown]
  - Feeling abnormal [Unknown]
  - Nausea [Unknown]
  - Restless legs syndrome [Unknown]
  - Nervousness [Unknown]
  - Dyspepsia [Unknown]
  - Logorrhoea [Unknown]
  - Social avoidant behaviour [Unknown]
  - Asthenia [Unknown]
  - Loose tooth [Unknown]
  - Drug ineffective [Unknown]
